FAERS Safety Report 8050283-4 (Version None)
Quarter: 2012Q1

REPORT INFORMATION
  Report Type: 
  Country: None (occurrence: None)
  Receive Date: 20120117
  Receipt Date: 20120109
  Transmission Date: 20120608
  Serious: Yes (Hospitalization)
  Sender: FDA-Public Use
  Company Number: SE-B.I. PHARMACEUTICALS,INC./RIDGEFIELD-2012-SW-00012SW

PATIENT
  Age: 68 Year
  Sex: Male

DRUGS (2)
  1. PRADAXA [Suspect]
     Dosage: 220 MG
     Dates: start: 20111206, end: 20111214
  2. PRADAXA [Suspect]
     Indication: HIP SURGERY
     Dosage: 110 MG
     Dates: start: 20111205, end: 20111205

REACTIONS (1)
  - MYOCARDIAL INFARCTION [None]
